FAERS Safety Report 10682893 (Version 1)
Quarter: 2014Q4

REPORT INFORMATION
  Report Type: Report from Study
  Country: TW (occurrence: TW)
  Receive Date: 20141230
  Receipt Date: 20141230
  Transmission Date: 20150529
  Serious: Yes (Other)
  Sender: FDA-Public Use
  Company Number: TW-CELGENE-TWN-2014123892

PATIENT
  Age: 70 Year
  Sex: Male

DRUGS (2)
  1. REVLIMID [Suspect]
     Active Substance: LENALIDOMIDE
     Dosage: DOSE REDUCED
     Route: 048
  2. REVLIMID [Suspect]
     Active Substance: LENALIDOMIDE
     Indication: PLASMA CELL MYELOMA
     Route: 048
     Dates: start: 201401

REACTIONS (5)
  - Rash [Unknown]
  - Thrombocytopenia [Unknown]
  - Anaemia [Unknown]
  - Nephropathy toxic [Unknown]
  - Leukopenia [Unknown]

NARRATIVE: CASE EVENT DATE: 201407
